FAERS Safety Report 4950203-2 (Version None)
Quarter: 2006Q1

REPORT INFORMATION
  Report Type: 
  Country: None (occurrence: None)
  Receive Date: 20060322
  Receipt Date: 20060317
  Transmission Date: 20060701
  Serious: Yes (Life-Threatening, Hospitalization)
  Sender: FDA-Public Use
  Company Number: PHRM2006FR01074

PATIENT
  Age: 34 Year
  Sex: Female

DRUGS (7)
  1. SYNTOCINON [Suspect]
     Indication: INDUCED ABORTION HAEMORRHAGE
     Route: 042
     Dates: start: 20051103
  2. ANTIHEMOPHILIC HUMAN PLASMA [Suspect]
     Indication: INDUCED ABORTION HAEMORRHAGE
     Dosage: 3 DF, UNK
     Route: 042
     Dates: start: 20051103
  3. KASKADIL [Suspect]
     Indication: INDUCED ABORTION HAEMORRHAGE
     Route: 042
     Dates: start: 20051103
  4. NALADOR [Suspect]
     Indication: INDUCED ABORTION HAEMORRHAGE
     Dosage: 500 UG, UNK
     Dates: start: 20051103
  5. RED BLOOD CELLS [Concomitant]
     Indication: INDUCED ABORTION HAEMORRHAGE
     Dosage: UNK, UNK
     Route: 042
     Dates: start: 20051103
  6. GELOFUSINE [Suspect]
     Indication: INDUCED ABORTION HAEMORRHAGE
     Dosage: 1.5 DF/DAY
     Dates: start: 20051103
  7. HAEMOCOMPLETTAN [Suspect]
     Indication: INDUCED ABORTION HAEMORRHAGE
     Dosage: 6 G, UNK
     Route: 042
     Dates: start: 20051103, end: 20051103

REACTIONS (5)
  - ACUTE PULMONARY OEDEMA [None]
  - ARTERIOSPASM CORONARY [None]
  - CARDIOGENIC SHOCK [None]
  - CARDIOMYOPATHY [None]
  - DRUG EXPOSURE DURING PREGNANCY [None]
